FAERS Safety Report 7056818-2 (Version None)
Quarter: 2010Q4

REPORT INFORMATION
  Report Type: 
  Country: None (occurrence: None)
  Receive Date: 20101022
  Receipt Date: 20100208
  Transmission Date: 20110411
  Serious: No
  Sender: FDA-Public Use
  Company Number: A0843503A

PATIENT
  Age: 21 Year
  Sex: Male

DRUGS (2)
  1. DUAC [Suspect]
     Indication: ACNE
     Route: 061
  2. TAZORAC [Concomitant]

REACTIONS (1)
  - DRY SKIN [None]
